FAERS Safety Report 15202760 (Version 2)
Quarter: 2018Q4

REPORT INFORMATION
  Report Type: Spontaneous
  Country: FR (occurrence: FR)
  Receive Date: 20180726
  Receipt Date: 20181108
  Transmission Date: 20190204
  Serious: Yes (Other)
  Sender: FDA-Public Use
  Company Number: FR-AUROBINDO-AUR-APL-2018-035327

PATIENT
  Age: 4 Month
  Sex: Male

DRUGS (3)
  1. GLIBENCLAMIDE TABLETS [Suspect]
     Active Substance: GLYBURIDE
     Indication: NEONATAL DIABETES MELLITUS
     Dosage: 0.1 MILLIGRAM/KILOGRAM, DAILY (0.4MG DAILY), DRINKABLE FORM
     Route: 048
  2. INSULIN [Concomitant]
     Active Substance: INSULIN NOS
     Indication: NEONATAL DIABETES MELLITUS
     Dosage: 0.015 INTERNATIONAL UNIT/KILOGRAM, EVERY HOUR (AT THE AGE OF 85 DAY)
     Route: 065
  3. INSULIN [Concomitant]
     Active Substance: INSULIN NOS
     Dosage: REDUCED PROGRESSIVELY AND DISCONTINUED ON THE 3RD DAY AFTER THE INITIATION OF GLIBENCLAMIDE
     Route: 065

REACTIONS (3)
  - Hypoglycaemia neonatal [Recovered/Resolved]
  - Off label use [Unknown]
  - Product use issue [Unknown]
